FAERS Safety Report 9403271 (Version 1)
Quarter: 2013Q3

REPORT INFORMATION
  Report Type: Spontaneous
  Country: US (occurrence: None)
  Receive Date: 20130715
  Receipt Date: 20130715
  Transmission Date: 20140515
  Serious: Yes (Other)
  Sender: FDA-Public Use
  Company Number: None

PATIENT
  Age: 68 Year
  Sex: Male
  Weight: 75.5 kg

DRUGS (1)
  1. NAPROXEN [Suspect]
     Dates: start: 20130418

REACTIONS (1)
  - Hypertension [None]
